FAERS Safety Report 19357386 (Version 1)
Quarter: 2021Q2

REPORT INFORMATION
  Report Type: Other
  Country: CN (occurrence: CN)
  Receive Date: 20210602
  Receipt Date: 20210602
  Transmission Date: 20210717
  Serious: Yes (Death)
  Sender: FDA-Public Use
  Company Number: CN-ROCHE-2205089

PATIENT
  Sex: Male
  Weight: 76 kg

DRUGS (1)
  1. AVASTIN [Suspect]
     Active Substance: BEVACIZUMAB
     Indication: NON-SMALL CELL LUNG CANCER
     Route: 041
     Dates: start: 20170830

REACTIONS (3)
  - Cardiac discomfort [Fatal]
  - Fatigue [Unknown]
  - Nasopharyngitis [Unknown]
